FAERS Safety Report 8822416 (Version 1)
Quarter: 2012Q4

REPORT INFORMATION
  Report Type: 
  Country: FR (occurrence: FR)
  Receive Date: 20121003
  Receipt Date: 20121003
  Transmission Date: 20130627
  Serious: Yes (Other)
  Sender: FDA-Public Use
  Company Number: FR-JNJFOC-20121000020

PATIENT
  Age: 84 Year
  Sex: Female

DRUGS (10)
  1. IXPRIM [Suspect]
     Indication: PRODUCT USED FOR UNKNOWN INDICATION
     Route: 048
     Dates: start: 20120816, end: 20120819
  2. PREVISCAN [Suspect]
     Indication: PRODUCT USED FOR UNKNOWN INDICATION
     Route: 048
     Dates: start: 20120819
  3. PREVISCAN [Suspect]
     Indication: PRODUCT USED FOR UNKNOWN INDICATION
     Route: 048
     Dates: end: 20120819
  4. AMOXICILLIN [Concomitant]
     Indication: URINARY TRACT INFECTION
     Route: 065
     Dates: start: 20120819
  5. GINKOR FORT [Concomitant]
     Route: 048
  6. DOLIPRANE [Concomitant]
     Route: 048
  7. OMEPRAZOLE [Concomitant]
     Route: 048
  8. TANAKAN [Concomitant]
     Route: 048
  9. APRANAX [Concomitant]
     Route: 048
     Dates: start: 20120816
  10. TENORDATE [Concomitant]
     Route: 048

REACTIONS (1)
  - Prothrombin time ratio decreased [Recovered/Resolved]
